FAERS Safety Report 16071911 (Version 1)
Quarter: 2019Q1

REPORT INFORMATION
  Report Type: Spontaneous
  Country: US (occurrence: US)
  Receive Date: 20190314
  Receipt Date: 20190314
  Transmission Date: 20190418
  Serious: Yes (Other)
  Sender: FDA-Public Use
  Company Number: US-BRISTOL-MYERS SQUIBB COMPANY-BMS-2019-025245

PATIENT
  Age: 26 Year
  Sex: Male
  Weight: 122.47 kg

DRUGS (2)
  1. ELIQUIS [Suspect]
     Active Substance: APIXABAN
     Indication: DEEP VEIN THROMBOSIS
     Dosage: 10 MILLIGRAM
     Route: 065
  2. LEXAPRO [Suspect]
     Active Substance: ESCITALOPRAM OXALATE
     Indication: DEPRESSION SUICIDAL
     Dosage: UNK
     Route: 065

REACTIONS (14)
  - Visual impairment [Unknown]
  - Weight decreased [Unknown]
  - Hypoacusis [Unknown]
  - Paraesthesia [Unknown]
  - Constipation [Unknown]
  - Depression suicidal [Unknown]
  - Heart rate increased [Unknown]
  - Back pain [Unknown]
  - Gastric ulcer [Unknown]
  - Contusion [Unknown]
  - Syncope [Unknown]
  - Blood pressure decreased [Unknown]
  - Sexual dysfunction [Unknown]
  - Ejaculation failure [Unknown]

NARRATIVE: CASE EVENT DATE: 2018
